FAERS Safety Report 23184088 (Version 1)
Quarter: 2023Q4

REPORT INFORMATION
  Report Type: Report from Study
  Country: US (occurrence: US)
  Receive Date: 20231115
  Receipt Date: 20231115
  Transmission Date: 20240110
  Serious: Yes (Other)
  Sender: FDA-Public Use
  Company Number: US-ABBVIE-5405352

PATIENT
  Sex: Male
  Weight: 54 kg

DRUGS (1)
  1. HUMIRA [Suspect]
     Active Substance: ADALIMUMAB
     Indication: Product used for unknown indication
     Dosage: FORM STRENGTH: 40 MILLIGRAM, HUMIRA CITRATE FREE PEN
     Route: 058
     Dates: end: 202307

REACTIONS (5)
  - Weight decreased [Unknown]
  - Pneumonia [Unknown]
  - Coccidioidomycosis [Unknown]
  - Musculoskeletal chest pain [Unknown]
  - COVID-19 [Unknown]

NARRATIVE: CASE EVENT DATE: 20230101
